FAERS Safety Report 8190150-9 (Version None)
Quarter: 2012Q1

REPORT INFORMATION
  Report Type: 
  Country: None (occurrence: None)
  Receive Date: 20120305
  Receipt Date: 20120221
  Transmission Date: 20120608
  Serious: Yes (Hospitalization)
  Sender: FDA-Public Use
  Company Number: UTC-015410

PATIENT
  Sex: Female

DRUGS (1)
  1. TYVASO [Suspect]
     Indication: PULMONARY ARTERIAL HYPERTENSION
     Dosage: 216 MCG (54 MCG,4 IN 1 D),INHALATION
     Route: 055
     Dates: start: 20110316, end: 20120209

REACTIONS (8)
  - RENAL FAILURE ACUTE [None]
  - ASTHENIA [None]
  - RESPIRATORY FAILURE [None]
  - TREATMENT NONCOMPLIANCE [None]
  - RIGHT VENTRICULAR FAILURE [None]
  - PULMONARY HYPERTENSION [None]
  - CONFUSIONAL STATE [None]
  - CONDITION AGGRAVATED [None]
